FAERS Safety Report 9417127 (Version 4)
Quarter: 2013Q3

REPORT INFORMATION
  Report Type: Spontaneous
  Country: US (occurrence: US)
  Receive Date: 20130724
  Receipt Date: 20130910
  Transmission Date: 20140515
  Serious: No
  Sender: FDA-Public Use
  Company Number: US-009507513-1307USA000195

PATIENT
  Age: 48 Year
  Sex: Female

DRUGS (5)
  1. PEG-INTRON [Suspect]
     Indication: HEPATITIS C
     Dosage: REDIPEN
     Dates: start: 20130531, end: 20130827
  2. REBETOL [Suspect]
     Indication: HEPATITIS C
     Dosage: UNK
     Route: 048
     Dates: start: 20130531, end: 2013
  3. REBETOL [Suspect]
     Dosage: UNK, QD
     Dates: start: 2013, end: 20130827
  4. VICTRELIS [Suspect]
     Indication: HEPATITIS C
     Dosage: UNK
     Dates: start: 20130705, end: 20130827
  5. WELLBUTRIN [Concomitant]
     Dosage: UNK

REACTIONS (12)
  - Bone pain [Unknown]
  - Depression [Unknown]
  - Rash [Unknown]
  - Asthenia [Unknown]
  - White blood cell count decreased [Unknown]
  - Eye pain [Unknown]
  - Swelling face [Unknown]
  - Facial pain [Unknown]
  - Headache [Unknown]
  - Blood count abnormal [Unknown]
  - Leukopenia [Unknown]
  - Drug ineffective [Unknown]
